FAERS Safety Report 15907793 (Version 1)
Quarter: 2019Q1

REPORT INFORMATION
  Report Type: Spontaneous
  Country: SE (occurrence: SE)
  Receive Date: 20190204
  Receipt Date: 20190204
  Transmission Date: 20190417
  Serious: Yes (Death, Other)
  Sender: FDA-Public Use
  Company Number: SE-ASTRAZENECA-2019SE18779

PATIENT
  Age: 69 Year
  Sex: Female

DRUGS (1)
  1. TAGRISSO [Suspect]
     Active Substance: OSIMERTINIB
     Indication: EGFR GENE MUTATION
     Route: 048

REACTIONS (7)
  - Oedema [Unknown]
  - Asthenia [Unknown]
  - Pain in extremity [Unknown]
  - Pneumonia [Fatal]
  - Deep vein thrombosis [Unknown]
  - Dysphonia [Unknown]
  - Thrombosis [Unknown]

NARRATIVE: CASE EVENT DATE: 201808
